FAERS Safety Report 22587802 (Version 2)
Quarter: 2023Q2

REPORT INFORMATION
  Report Type: Other
  Country: US (occurrence: None)
  Receive Date: 20230612
  Receipt Date: 20230613
  Transmission Date: 20230721
  Serious: No
  Sender: FDA-Public Use
  Company Number: US-ROCHE-3365400

PATIENT
  Age: 59 Year
  Sex: Female

DRUGS (32)
  1. OCRELIZUMAB [Suspect]
     Active Substance: OCRELIZUMAB
     Indication: Multiple sclerosis
     Dosage: FIRST DOSE
     Route: 065
     Dates: start: 20210811
  2. OCRELIZUMAB [Suspect]
     Active Substance: OCRELIZUMAB
     Dosage: SECOND DOSE
     Route: 065
     Dates: start: 20210825
  3. OCRELIZUMAB [Suspect]
     Active Substance: OCRELIZUMAB
     Route: 065
     Dates: start: 20220301
  4. OCRELIZUMAB [Suspect]
     Active Substance: OCRELIZUMAB
     Route: 065
     Dates: start: 20220926
  5. OCRELIZUMAB [Suspect]
     Active Substance: OCRELIZUMAB
     Route: 065
     Dates: start: 20230414
  6. ALEMTUZUMAB [Concomitant]
     Active Substance: ALEMTUZUMAB
     Indication: Multiple sclerosis
     Dates: start: 20160313, end: 20160315
  7. ALEMTUZUMAB [Concomitant]
     Active Substance: ALEMTUZUMAB
     Dates: start: 20200203, end: 20200205
  8. DONEPEZIL [Concomitant]
     Active Substance: DONEPEZIL
     Dates: start: 20210511
  9. DEXTROMETHORPHAN HYDROBROMIDE\QUINIDINE SULFATE [Concomitant]
     Active Substance: DEXTROMETHORPHAN HYDROBROMIDE\QUINIDINE SULFATE
     Indication: Multiple sclerosis
     Dates: start: 20210511
  10. ACYCLOVIR [Concomitant]
     Active Substance: ACYCLOVIR
     Indication: Multiple sclerosis
     Dates: start: 20160302
  11. CHOLECALCIFEROL [Concomitant]
     Active Substance: CHOLECALCIFEROL
     Indication: Prophylaxis
     Dates: start: 20201105
  12. AMPHETAMINE;DEXTROAMPHETAMINE [Concomitant]
     Indication: Multiple sclerosis
     Dates: start: 20140123
  13. DULOXETINE [Concomitant]
     Active Substance: DULOXETINE
     Indication: Multiple sclerosis
     Dates: start: 20140206
  14. ESTRADIOL [Concomitant]
     Active Substance: ESTRADIOL
     Indication: Hormone replacement therapy
     Dates: start: 20191006
  15. PFIZER-BIONTECH COVID-19 VACCINE [Concomitant]
     Active Substance: TOZINAMERAN
     Indication: Immunisation
     Dates: start: 20210303, end: 20210303
  16. PFIZER-BIONTECH COVID-19 VACCINE [Concomitant]
     Active Substance: TOZINAMERAN
     Dates: start: 20210324, end: 20210324
  17. PFIZER-BIONTECH COVID-19 VACCINE [Concomitant]
     Active Substance: TOZINAMERAN
     Dates: start: 20220103, end: 20220103
  18. EVUSHELD [Concomitant]
     Active Substance: CILGAVIMAB\TIXAGEVIMAB
     Indication: COVID-19
     Dates: start: 20220215, end: 20220215
  19. RETIN-A [Concomitant]
     Active Substance: TRETINOIN
     Dates: start: 20211207
  20. AMANTADINE HYDROCHLORIDE [Concomitant]
     Active Substance: AMANTADINE HYDROCHLORIDE
     Indication: Multiple sclerosis
     Dates: start: 20130512
  21. XALATAN [Concomitant]
     Active Substance: LATANOPROST
     Dates: start: 20210909
  22. BACLOFEN [Concomitant]
     Active Substance: BACLOFEN
     Dates: start: 2016
  23. LISINOPRIL AND HYDROCHLOROTHIAZIDE [Concomitant]
     Active Substance: HYDROCHLOROTHIAZIDE\LISINOPRIL
     Dates: start: 2016
  24. PREVACID [Concomitant]
     Active Substance: LANSOPRAZOLE
     Dates: start: 20150415
  25. PRAVACHOL [Concomitant]
     Active Substance: PRAVASTATIN SODIUM
     Dates: start: 20170815
  26. COENZYME Q10 [Concomitant]
     Active Substance: DIETARY SUPPLEMENT\UBIDECARENONE
     Dates: start: 2013
  27. CRANBERRY [Concomitant]
     Active Substance: CRANBERRY
     Dates: start: 2013
  28. METFORMIN HYDROCHLORIDE [Concomitant]
     Active Substance: METFORMIN HYDROCHLORIDE
     Dates: start: 20131220
  29. PROGESTERONE [Concomitant]
     Active Substance: PROGESTERONE
     Dates: start: 20200511
  30. TIXAGEVIMAB [Concomitant]
     Active Substance: TIXAGEVIMAB
     Indication: Prophylaxis
     Dates: start: 20220428, end: 20220428
  31. CILGAVIMAB [Concomitant]
     Active Substance: CILGAVIMAB
     Indication: Prophylaxis
     Dates: start: 20220428, end: 20220428
  32. VANIQA (UNITED STATES) [Concomitant]
     Dates: start: 20220216

REACTIONS (1)
  - COVID-19 [Recovered/Resolved]

NARRATIVE: CASE EVENT DATE: 20221108
